FAERS Safety Report 21556626 (Version 3)
Quarter: 2023Q1

REPORT INFORMATION
  Report Type: Report from Study
  Country: ES (occurrence: ES)
  Receive Date: 20221104
  Receipt Date: 20230304
  Transmission Date: 20230418
  Serious: Yes (Other)
  Sender: FDA-Public Use
  Company Number: ES-ABBVIE-4187980

PATIENT
  Age: 72 Year
  Sex: Male

DRUGS (4)
  1. CARBIDOPA\LEVODOPA [Suspect]
     Active Substance: CARBIDOPA\LEVODOPA
     Indication: Parkinson^s disease
  2. CARBIDOPA\LEVODOPA [Suspect]
     Active Substance: CARBIDOPA\LEVODOPA
  3. QUETIAPINE [Concomitant]
     Active Substance: QUETIAPINE
     Indication: Confusional state
     Route: 048
     Dates: end: 202210
  4. QUETIAPINE [Concomitant]
     Active Substance: QUETIAPINE
     Indication: Confusional state
     Dosage: 150 MILLIGRAM
     Route: 048
     Dates: start: 202210

REACTIONS (7)
  - Coordination abnormal [Not Recovered/Not Resolved]
  - Dysstasia [Recovered/Resolved with Sequelae]
  - Parkinson^s disease [Unknown]
  - Fall [Recovered/Resolved]
  - Confusional state [Not Recovered/Not Resolved]
  - Cognitive disorder [Unknown]
  - Fall [Unknown]

NARRATIVE: CASE EVENT DATE: 20221023
